FAERS Safety Report 23441890 (Version 1)
Quarter: 2024Q1

REPORT INFORMATION
  Report Type: Spontaneous
  Country: US (occurrence: US)
  Receive Date: 20240125
  Receipt Date: 20240125
  Transmission Date: 20240410
  Serious: Yes (Hospitalization, Other)
  Sender: FDA-Public Use
  Company Number: US-APOTEX-2024AP001388

PATIENT
  Age: 53 Year
  Sex: Female

DRUGS (5)
  1. GABAPENTIN [Suspect]
     Active Substance: GABAPENTIN
     Indication: Product used for unknown indication
     Dosage: 9 GRAM
     Route: 048
  2. BUPROPION [Suspect]
     Active Substance: BUPROPION
     Indication: Product used for unknown indication
     Dosage: 13.5 GRAM
     Route: 048
  3. CLONIDINE [Suspect]
     Active Substance: CLONIDINE
     Indication: Product used for unknown indication
     Dosage: 6 MILLIGRAM
     Route: 048
  4. FLUOXETINE [Suspect]
     Active Substance: FLUOXETINE HYDROCHLORIDE
     Indication: Product used for unknown indication
     Dosage: 1.2 GRAM
     Route: 048
  5. QUETIAPINE [Suspect]
     Active Substance: QUETIAPINE
     Indication: Product used for unknown indication
     Dosage: 6 GRAM
     Route: 048

REACTIONS (24)
  - Intentional overdose [Recovering/Resolving]
  - Seizure [Recovering/Resolving]
  - Acute respiratory distress syndrome [Not Recovered/Not Resolved]
  - Hypokinesia [Recovering/Resolving]
  - Hypotension [Recovering/Resolving]
  - Electrocardiogram QT prolonged [Recovering/Resolving]
  - Acidosis [Recovering/Resolving]
  - Respiratory failure [Not Recovered/Not Resolved]
  - Haemodynamic instability [Recovering/Resolving]
  - Toxicity to various agents [Recovering/Resolving]
  - Cardiovascular disorder [Recovering/Resolving]
  - Blood pressure systolic decreased [Recovering/Resolving]
  - Myoclonus [Recovering/Resolving]
  - Hypotonia [Recovering/Resolving]
  - Normocytic anaemia [Recovering/Resolving]
  - Blood lactic acid increased [Recovering/Resolving]
  - Bundle branch block left [Recovering/Resolving]
  - Electrocardiogram QRS complex prolonged [Recovering/Resolving]
  - Serotonin syndrome [Recovering/Resolving]
  - Ejection fraction decreased [Recovered/Resolved]
  - Speech disorder [Unknown]
  - Agitation [Unknown]
  - Blood creatine phosphokinase increased [Recovering/Resolving]
  - Sedation [Recovering/Resolving]
